FAERS Safety Report 5051629-1 (Version None)
Quarter: 2006Q3

REPORT INFORMATION
  Report Type: 
  Country: None (occurrence: None)
  Receive Date: 20060714
  Receipt Date: 20060710
  Transmission Date: 20061208
  Serious: Yes (Hospitalization, Disabling)
  Sender: FDA-Public Use
  Company Number: US-GLAXOSMITHKLINE-A0612106A

PATIENT
  Sex: Female

DRUGS (4)
  1. LAMICTAL [Suspect]
     Indication: BIPOLAR DISORDER
     Route: 048
     Dates: start: 20040304
  2. ZYPREXA [Concomitant]
     Indication: BIPOLAR DISORDER
     Dates: start: 20040302
  3. TYLENOL (CAPLET) [Concomitant]
  4. NYQUIL [Concomitant]

REACTIONS (16)
  - CHILLS [None]
  - GASTROINTESTINAL DISORDER [None]
  - HEADACHE [None]
  - HYPERHIDROSIS [None]
  - HYPERSENSITIVITY [None]
  - NAIL GROWTH ABNORMAL [None]
  - ORAL MUCOSAL BLISTERING [None]
  - PRURITUS [None]
  - PYREXIA [None]
  - RASH [None]
  - SCAR [None]
  - SKIN HYPERPIGMENTATION [None]
  - STEVENS-JOHNSON SYNDROME [None]
  - THROAT TIGHTNESS [None]
  - TOXIC EPIDERMAL NECROLYSIS [None]
  - URINARY TRACT DISORDER [None]
